FAERS Safety Report 12291012 (Version 2)
Quarter: 2016Q3

REPORT INFORMATION
  Report Type: Spontaneous
  Country: DE (occurrence: DE)
  Receive Date: 20160421
  Receipt Date: 20160810
  Transmission Date: 20161109
  Serious: Yes (Other)
  Sender: FDA-Public Use
  Company Number: DE-ASTELLAS-2016US014291

PATIENT
  Sex: Female
  Weight: 62 kg

DRUGS (6)
  1. L-THYROXIN [Concomitant]
     Active Substance: LEVOTHYROXINE SODIUM
     Indication: BASEDOW^S DISEASE
     Route: 048
     Dates: start: 2000
  2. PROGRAF [Suspect]
     Active Substance: TACROLIMUS\TACROLIMUS ANHYDROUS
     Indication: LIVER TRANSPLANT
     Dosage: 0.5 MG, TWICE DAILY (MORNING AND NIGHT)
     Route: 048
     Dates: start: 201006
  3. ADVAGRAF [Suspect]
     Active Substance: TACROLIMUS
     Indication: LIVER TRANSPLANT
     Dosage: 0.5 MG, ONCE DAILY
     Route: 065
  4. MODIGRAF [Suspect]
     Active Substance: TACROLIMUS
     Indication: LIVER TRANSPLANT
     Dosage: UNK, UNKNOWN FREQ.
     Route: 065
  5. CELLCEPT [Suspect]
     Active Substance: MYCOPHENOLATE MOFETIL\MYCOPHENOLATE MOFETIL HYDROCHLORIDE
     Indication: LIVER TRANSPLANT
     Dosage: 500 UNK, TWICE DAILY
     Route: 048
     Dates: start: 201006
  6. MODIGRAF [Suspect]
     Active Substance: TACROLIMUS
     Dosage: 0.4 MG, TWICE DAILY
     Route: 065

REACTIONS (9)
  - Drug dose omission [Unknown]
  - General physical health deterioration [Recovering/Resolving]
  - Arthropathy [Recovering/Resolving]
  - Photophobia [Recovering/Resolving]
  - Liver transplant rejection [Recovering/Resolving]
  - Balance disorder [Recovering/Resolving]
  - Insomnia [Recovering/Resolving]
  - Feeling cold [Recovering/Resolving]
  - Headache [Recovering/Resolving]

NARRATIVE: CASE EVENT DATE: 201006
